FAERS Safety Report 21471437 (Version 1)
Quarter: 2022Q4

REPORT INFORMATION
  Report Type: Spontaneous
  Country: US (occurrence: US)
  Receive Date: 20221018
  Receipt Date: 20221018
  Transmission Date: 20230112
  Serious: No
  Sender: FDA-Public Use
  Company Number: US-ABBVIE-4148667

PATIENT
  Sex: Male

DRUGS (1)
  1. IMBRUVICA [Suspect]
     Active Substance: IBRUTINIB
     Indication: Product used for unknown indication
     Dosage: TIME INTERVAL: 0.33333333 DAYS: FORM STRENGTH: 140 MILLIGRAM
     Route: 048
     Dates: start: 20220328

REACTIONS (3)
  - Emotional disorder [Unknown]
  - Anger [Unknown]
  - Crying [Unknown]

NARRATIVE: CASE EVENT DATE: 20220101
